FAERS Safety Report 21015589 (Version 4)
Quarter: 2022Q3

REPORT INFORMATION
  Report Type: Spontaneous
  Country: US (occurrence: US)
  Receive Date: 20220628
  Receipt Date: 20220804
  Transmission Date: 20221027
  Serious: No
  Sender: FDA-Public Use
  Company Number: US-PFIZER INC-2020132147

PATIENT
  Age: 6 Year
  Sex: Male
  Weight: 31.75 kg

DRUGS (1)
  1. GENOTROPIN [Suspect]
     Active Substance: SOMATROPIN
     Indication: Blood growth hormone decreased
     Dosage: 1.2 MG, DAILY
     Route: 058

REACTIONS (4)
  - Device use issue [Unknown]
  - Device information output issue [Unknown]
  - Device issue [Unknown]
  - Drug dose omission by device [Unknown]
